FAERS Safety Report 8790274 (Version 1)
Quarter: 2012Q4

REPORT INFORMATION
  Report Type: Report from Study
  Country: CA (occurrence: CA)
  Receive Date: 20120917
  Receipt Date: 20120917
  Transmission Date: 20130627
  Serious: Yes (Other)
  Sender: FDA-Public Use
  Company Number: CA-JNJFOC-20120905435

PATIENT
  Age: 53 Year
  Sex: Female
  Weight: 57 kg

DRUGS (19)
  1. REMICADE [Suspect]
     Indication: RHEUMATOID ARTHRITIS
     Route: 042
     Dates: start: 201203
  2. HYDROMORPHONE [Concomitant]
     Route: 065
  3. ASA [Concomitant]
     Route: 065
  4. PREDNISONE [Concomitant]
     Route: 065
  5. METOPROLOL [Concomitant]
     Route: 065
  6. HYDROCHLOROTHIAZIDE [Concomitant]
     Route: 065
  7. DIGOXIN [Concomitant]
     Route: 065
  8. GLICLAZIDE [Concomitant]
     Route: 065
  9. METFORMIN [Concomitant]
     Route: 065
  10. RAMIPRIL [Concomitant]
     Route: 065
  11. FOLIC ACID [Concomitant]
     Route: 065
  12. BUSCOPAN [Concomitant]
     Route: 065
  13. TRIMEBUTINE [Concomitant]
     Route: 065
  14. RANITIDINE [Concomitant]
     Route: 065
  15. ESTROGEN [Concomitant]
     Route: 065
  16. FLEXEN NOS [Concomitant]
     Route: 065
  17. ZOPICLONE [Concomitant]
     Route: 065
  18. METHOTREXATE [Concomitant]
     Route: 065
  19. CALCIUM [Concomitant]
     Route: 065

REACTIONS (1)
  - Chest pain [Recovered/Resolved]
